FAERS Safety Report 6156485-6 (Version None)
Quarter: 2009Q2

REPORT INFORMATION
  Report Type: 
  Country: None (occurrence: None)
  Receive Date: 20090416
  Receipt Date: 20090408
  Transmission Date: 20091009
  Serious: Yes (Death, Hospitalization)
  Sender: FDA-Public Use
  Company Number: JP-BAXTER-2009BH005381

PATIENT
  Age: 15 Month
  Sex: Male

DRUGS (3)
  1. ADVATE [Suspect]
     Indication: FACTOR VIII DEFICIENCY
     Route: 042
     Dates: start: 20080701
  2. ADVATE [Suspect]
     Route: 040
     Dates: start: 20090330
  3. ADVATE [Suspect]
     Route: 042
     Dates: start: 20090330

REACTIONS (1)
  - EXTRADURAL HAEMATOMA [None]
